FAERS Safety Report 6105160-2 (Version None)
Quarter: 2009Q1

REPORT INFORMATION
  Report Type: 
  Country: None (occurrence: None)
  Receive Date: 20090306
  Receipt Date: 20090304
  Transmission Date: 20090719
  Serious: Yes (Hospitalization)
  Sender: FDA-Public Use
  Company Number: US-BIOGENIDEC-2006BI003381

PATIENT
  Age: 21 Year
  Sex: Male

DRUGS (8)
  1. AVONEX [Suspect]
     Indication: MULTIPLE SCLEROSIS
     Route: 030
     Dates: start: 20040223, end: 20050101
  2. AVONEX [Suspect]
     Route: 030
     Dates: start: 20050201
  3. BACLOFEN [Concomitant]
  4. INDERAL LA [Concomitant]
  5. UROXATRAL [Concomitant]
  6. LEXAPRO [Concomitant]
  7. NAPROXEN [Concomitant]
  8. SENOKOT [Concomitant]

REACTIONS (15)
  - COORDINATION ABNORMAL [None]
  - DEPRESSED LEVEL OF CONSCIOUSNESS [None]
  - DEPRESSION [None]
  - DROOLING [None]
  - INFLUENZA LIKE ILLNESS [None]
  - LETHARGY [None]
  - LOSS OF CONTROL OF LEGS [None]
  - MUSCULAR WEAKNESS [None]
  - PARALYSIS [None]
  - RETCHING [None]
  - SOMNOLENCE [None]
  - TREMOR [None]
  - UPPER RESPIRATORY TRACT INFECTION [None]
  - URINARY INCONTINENCE [None]
  - VOMITING [None]
